FAERS Safety Report 24184107 (Version 2)
Quarter: 2024Q3

REPORT INFORMATION
  Report Type: Spontaneous
  Country: TW (occurrence: TW)
  Receive Date: 20240807
  Receipt Date: 20240812
  Transmission Date: 20241017
  Serious: Yes (Death, Life-Threatening, Hospitalization, Other)
  Sender: PFIZER
  Company Number: TW-MLMSERVICE-20240726-PI144015-00202-1

PATIENT
  Age: 86 Year
  Sex: Female

DRUGS (2)
  1. LINEZOLID [Suspect]
     Active Substance: LINEZOLID
     Indication: Antibiotic therapy
     Dosage: UNK
  2. COLCHICINE [Suspect]
     Active Substance: COLCHICINE
     Dosage: UNK

REACTIONS (3)
  - Haemophagocytic lymphohistiocytosis [Fatal]
  - Drug ineffective [Unknown]
  - Myelosuppression [Unknown]
